FAERS Safety Report 5407688-7 (Version None)
Quarter: 2007Q3

REPORT INFORMATION
  Report Type: 
  Country: None (occurrence: None)
  Receive Date: 20070807
  Receipt Date: 20070726
  Transmission Date: 20080115
  Serious: No
  Sender: FDA-Public Use
  Company Number: MX-PFIZER INC-2007064470

PATIENT
  Sex: Female
  Weight: 71 kg

DRUGS (2)
  1. RELPAX [Suspect]
     Indication: HEADACHE
     Dosage: TEXT:ONE DOSE
     Route: 048
     Dates: start: 20070723, end: 20070723
  2. TEMPRA [Interacting]
     Route: 048
     Dates: start: 20070722, end: 20070722

REACTIONS (6)
  - DRUG INTERACTION [None]
  - DRY MOUTH [None]
  - HYPERSENSITIVITY [None]
  - NAUSEA [None]
  - PAIN [None]
  - PARAESTHESIA [None]
